FAERS Safety Report 5001794-7 (Version None)
Quarter: 2006Q2

REPORT INFORMATION
  Report Type: 
  Country: None (occurrence: None)
  Receive Date: 20060512
  Receipt Date: 20060512
  Transmission Date: 20061013
  Serious: Yes (Hospitalization)
  Sender: FDA-Public Use
  Company Number: None

PATIENT
  Age: 56 Year
  Sex: Male
  Weight: 95.7 kg

DRUGS (2)
  1. LINEZOLID [Suspect]
     Indication: HYPOTENSION
     Dosage: 600 MG Q12H IV BOLUS
     Route: 040
  2. LINEZOLID [Suspect]
     Indication: SEPSIS
     Dosage: 600 MG Q12H IV BOLUS
     Route: 040

REACTIONS (1)
  - THROMBOCYTOPENIA [None]
